FAERS Safety Report 6626502-5 (Version None)
Quarter: 2010Q1

REPORT INFORMATION
  Report Type: 
  Country: None (occurrence: None)
  Receive Date: 20100309
  Receipt Date: 20100309
  Transmission Date: 20100710
  Serious: No
  Sender: FDA-Public Use
  Company Number: None

PATIENT
  Sex: Male
  Weight: 119.7496 kg

DRUGS (1)
  1. CIPROFLOXACIN 750MG COBALT LABORATORIES [Suspect]
     Indication: SKIN ULCER
     Dosage: 750MG TWICE DAILY PO
     Route: 048
     Dates: start: 20100121, end: 20100127

REACTIONS (2)
  - DRUG ERUPTION [None]
  - VASCULITIS [None]
